FAERS Safety Report 16697634 (Version 1)
Quarter: 2019Q4

REPORT INFORMATION
  Report Type: Spontaneous
  Country: US (occurrence: US)
  Receive Date: 20190812
  Receipt Date: 20190812
  Transmission Date: 20200122
  Serious: Yes (Death)
  Sender: FDA-Public Use
  Company Number: None

PATIENT
  Sex: Female

DRUGS (8)
  1. ACYCLOVIR. [Concomitant]
     Active Substance: ACYCLOVIR
  2. POTASSIUM [Concomitant]
     Active Substance: POTASSIUM
  3. CRESEMBRA [Concomitant]
  4. XALKORI [Suspect]
     Active Substance: CRIZOTINIB
     Indication: DRUG THERAPY
     Route: 048
     Dates: start: 20190103
  5. AMOXICILLIN. [Concomitant]
     Active Substance: AMOXICILLIN
  6. DAPSONE. [Concomitant]
     Active Substance: DAPSONE
  7. GABAPENTIN. [Concomitant]
     Active Substance: GABAPENTIN
  8. LOVENOX [Concomitant]
     Active Substance: ENOXAPARIN SODIUM

REACTIONS (1)
  - Death [None]
